FAERS Safety Report 9185836 (Version 1)
Quarter: 2012Q4

REPORT INFORMATION
  Report Type: Report from Study
  Country: US (occurrence: US)
  Receive Date: 20121101
  Receipt Date: 20121101
  Transmission Date: 20130627
  Serious: Yes (Hospitalization, Other)
  Sender: FDA-Public Use
  Company Number: US-MPIJNJ-2012-07501

PATIENT
  Age: 49 Year
  Sex: Female
  Weight: 70.5 kg

DRUGS (3)
  1. VELCADE [Suspect]
     Indication: WALDENSTROM^S MACROGLOBULINAEMIA
  2. EVEROLIMUS [Suspect]
     Indication: WALDENSTROM^S MACROGLOBULINAEMIA
     Dosage: 10 mg, qd
     Route: 048
     Dates: start: 20110218, end: 20120504
  3. RITUXIMAB [Suspect]
     Indication: WALDENSTROM^S MACROGLOBULINAEMIA

REACTIONS (5)
  - Haemolytic anaemia [Unknown]
  - Haemorrhagic stroke [Unknown]
  - Cardiac tamponade [Unknown]
  - Renal failure acute [Unknown]
  - Sepsis [Unknown]
